FAERS Safety Report 6782884-5 (Version None)
Quarter: 2010Q2

REPORT INFORMATION
  Report Type: 
  Country: None (occurrence: None)
  Receive Date: 20100622
  Receipt Date: 20100617
  Transmission Date: 20101027
  Serious: Yes (Other)
  Sender: FDA-Public Use
  Company Number: US-ASTRAZENECA-2009UW10779

PATIENT
  Age: 17302 Day
  Sex: Male

DRUGS (4)
  1. SEROQUEL [Suspect]
     Dosage: 200 MG TO 300 MG
     Route: 048
     Dates: start: 20020130
  2. ATORVASTATIN [Concomitant]
     Dates: start: 20070912
  3. LISINOPRIL [Concomitant]
     Dates: start: 20070912
  4. TRAZODONE HCL [Concomitant]
     Dates: start: 20020812

REACTIONS (2)
  - NEUROPATHY PERIPHERAL [None]
  - TYPE 2 DIABETES MELLITUS [None]
